FAERS Safety Report 6031813-0 (Version None)
Quarter: 2008Q4

REPORT INFORMATION
  Report Type: 
  Country: None (occurrence: None)
  Receive Date: 20081231
  Receipt Date: 20081016
  Transmission Date: 20090506
  Serious: Yes (Other)
  Sender: FDA-Public Use
  Company Number: 178838USA

PATIENT
  Age: 17 Year
  Sex: Female

DRUGS (1)
  1. LAMOTRIGINE [Suspect]
     Indication: CONVULSION
     Dosage: (150 MG) ,ORAL
     Route: 048
     Dates: start: 20080901

REACTIONS (1)
  - CONVULSION [None]
